FAERS Safety Report 16955900 (Version 2)
Quarter: 2021Q1

REPORT INFORMATION
  Report Type: Spontaneous
  Country: US (occurrence: US)
  Receive Date: 20191024
  Receipt Date: 20210119
  Transmission Date: 20210419
  Serious: Yes (Hospitalization, Other)
  Sender: FDA-Public Use
  Company Number: US-SUN PHARMACEUTICAL INDUSTRIES LTD-2019R1-224803

PATIENT
  Age: 36 Year
  Sex: Male

DRUGS (2)
  1. CLARITHROMYCIN. [Suspect]
     Active Substance: CLARITHROMYCIN
     Indication: PNEUMONIA
     Dosage: UNK
     Route: 065
  2. MOXIFLOXACIN. [Suspect]
     Active Substance: MOXIFLOXACIN
     Indication: PNEUMONIA
     Dosage: UNK
     Route: 065

REACTIONS (2)
  - Drug reaction with eosinophilia and systemic symptoms [Unknown]
  - Drug ineffective [Unknown]
